FAERS Safety Report 8289821-5 (Version None)
Quarter: 2012Q2

REPORT INFORMATION
  Report Type: 
  Country: None (occurrence: None)
  Receive Date: 20120417
  Receipt Date: 20120411
  Transmission Date: 20120825
  Serious: No
  Sender: FDA-Public Use
  Company Number: US-PFIZER INC-2012051604

PATIENT
  Sex: Female

DRUGS (3)
  1. EXELON [Suspect]
     Dosage: UNK
  2. ARTHROTEC [Suspect]
     Dosage: UNK
  3. ARTHROTEC [Suspect]
     Dosage: UNK
     Dates: start: 20120227

REACTIONS (9)
  - ACTIVITIES OF DAILY LIVING IMPAIRED [None]
  - NASOPHARYNGITIS [None]
  - COUGH [None]
  - RHINORRHOEA [None]
  - VOMITING [None]
  - DRUG HYPERSENSITIVITY [None]
  - MENTAL DISORDER [None]
  - EPISTAXIS [None]
  - MALAISE [None]
